FAERS Safety Report 19450165 (Version 4)
Quarter: 2023Q2

REPORT INFORMATION
  Report Type: Spontaneous
  Country: US (occurrence: US)
  Receive Date: 20210622
  Receipt Date: 20230615
  Transmission Date: 20230722
  Serious: Yes (Hospitalization, Other)
  Sender: FDA-Public Use
  Company Number: US-GILEAD-2021-0537486

PATIENT
  Sex: Male
  Weight: 87.997 kg

DRUGS (37)
  1. VIREAD [Suspect]
     Active Substance: TENOFOVIR DISOPROXIL FUMARATE
     Indication: HIV infection
     Dosage: UNK
     Route: 048
     Dates: start: 2001
  2. VIREAD [Suspect]
     Active Substance: TENOFOVIR DISOPROXIL FUMARATE
     Dosage: UNK
     Route: 048
     Dates: start: 2005, end: 2013
  3. VIREAD [Suspect]
     Active Substance: TENOFOVIR DISOPROXIL FUMARATE
     Dosage: UNK
     Route: 048
     Dates: start: 200312, end: 200805
  4. TRUVADA [Suspect]
     Active Substance: EMTRICITABINE\TENOFOVIR DISOPROXIL FUMARATE
     Indication: HIV infection
     Dosage: UNK
     Route: 048
     Dates: start: 2001
  5. TRUVADA [Suspect]
     Active Substance: EMTRICITABINE\TENOFOVIR DISOPROXIL FUMARATE
     Dosage: UNK
     Route: 048
     Dates: start: 2013, end: 2018
  6. TRUVADA [Suspect]
     Active Substance: EMTRICITABINE\TENOFOVIR DISOPROXIL FUMARATE
     Dosage: UNK
     Route: 048
     Dates: start: 200805, end: 201805
  7. ATRIPLA [Suspect]
     Active Substance: EFAVIRENZ\EMTRICITABINE\TENOFOVIR DISOPROXIL FUMARATE
     Indication: HIV infection
     Dosage: UNK
     Route: 048
     Dates: start: 2001
  8. COMPLERA [Suspect]
     Active Substance: EMTRICITABINE\RILPIVIRINE HYDROCHLORIDE\TENOFOVIR DISOPROXIL FUMARATE
     Indication: HIV infection
     Dosage: UNK
     Route: 048
     Dates: start: 2001
  9. BIKTARVY [Concomitant]
     Active Substance: BICTEGRAVIR SODIUM\EMTRICITABINE\TENOFOVIR ALAFENAMIDE FUMARATE
  10. COMBIVIR [Concomitant]
     Active Substance: LAMIVUDINE\ZIDOVUDINE
  11. CRIXIVAN [Concomitant]
     Active Substance: INDINAVIR SULFATE
  12. DESCOVY [Concomitant]
     Active Substance: EMTRICITABINE\TENOFOVIR ALAFENAMIDE FUMARATE
  13. EPIVIR [Concomitant]
     Active Substance: LAMIVUDINE
  14. ISENTRESS [Concomitant]
     Active Substance: RALTEGRAVIR POTASSIUM
  15. JULUCA [Concomitant]
     Active Substance: DOLUTEGRAVIR SODIUM\RILPIVIRINE HYDROCHLORIDE
  16. KALETRA [Concomitant]
     Active Substance: LOPINAVIR\RITONAVIR
  17. NORVIR [Concomitant]
     Active Substance: RITONAVIR
  18. REYATAZ [Concomitant]
     Active Substance: ATAZANAVIR SULFATE
  19. TIVICAY [Concomitant]
     Active Substance: DOLUTEGRAVIR SODIUM
  20. VIRACEPT [Concomitant]
     Active Substance: NELFINAVIR MESYLATE
  21. VIRAMUNE [Concomitant]
     Active Substance: NEVIRAPINE
  22. AMLODIPINE [Concomitant]
     Active Substance: AMLODIPINE BESYLATE
  23. GABAPENTIN [Concomitant]
     Active Substance: GABAPENTIN
  24. AZITHROMYCIN [Concomitant]
     Active Substance: AZITHROMYCIN
  25. KEPPRA [Concomitant]
     Active Substance: LEVETIRACETAM
  26. DEPAKOTE [Concomitant]
     Active Substance: DIVALPROEX SODIUM
  27. HYDROCHLOROTHIAZIDE [Concomitant]
     Active Substance: HYDROCHLOROTHIAZIDE
  28. DARUNAVIR ETHANOLATE [Concomitant]
     Active Substance: DARUNAVIR ETHANOLATE
  29. VIDEX [Concomitant]
     Active Substance: DIDANOSINE
  30. METHOCARBAMOL [Concomitant]
     Active Substance: METHOCARBAMOL
  31. FAMCICLOVIR [Concomitant]
     Active Substance: FAMCICLOVIR
  32. ZERIT [Concomitant]
     Active Substance: STAVUDINE
  33. TIPRANAVIR [Concomitant]
     Active Substance: TIPRANAVIR
  34. NAPROXEN [Concomitant]
     Active Substance: NAPROXEN
  35. CHOLECALCIFEROL [Concomitant]
     Active Substance: CHOLECALCIFEROL
  36. VITAMINS NOS [Concomitant]
     Active Substance: VITAMINS
  37. ODEFSEY [Concomitant]
     Active Substance: EMTRICITABINE\RILPIVIRINE HYDROCHLORIDE\TENOFOVIR ALAFENAMIDE FUMARATE

REACTIONS (11)
  - Osteoporosis [Not Recovered/Not Resolved]
  - Radius fracture [Not Recovered/Not Resolved]
  - Bone density decreased [Unknown]
  - Upper limb fracture [Unknown]
  - Pain [Not Recovered/Not Resolved]
  - Emotional distress [Not Recovered/Not Resolved]
  - Anxiety [Not Recovered/Not Resolved]
  - Anhedonia [Not Recovered/Not Resolved]
  - Tooth loss [Not Recovered/Not Resolved]
  - Loss of personal independence in daily activities [Unknown]
  - Osteopenia [Not Recovered/Not Resolved]

NARRATIVE: CASE EVENT DATE: 20060101
